FAERS Safety Report 7757338-X (Version None)
Quarter: 2011Q3

REPORT INFORMATION
  Report Type: 
  Country: None (occurrence: None)
  Receive Date: 20110916
  Receipt Date: 20110909
  Transmission Date: 20111222
  Serious: No
  Sender: FDA-Public Use
  Company Number: US-BAYER-2011-084092

PATIENT
  Age: 66 Year
  Sex: Female

DRUGS (1)
  1. LEUKINE [Suspect]
     Indication: LUNG NEOPLASM MALIGNANT
     Dosage: UNK
     Dates: start: 20110908, end: 20110908

REACTIONS (3)
  - DIZZINESS [None]
  - MALAISE [None]
  - CONFUSIONAL STATE [None]
